FAERS Safety Report 8575727-0 (Version None)
Quarter: 2012Q3

REPORT INFORMATION
  Report Type: 
  Country: None (occurrence: None)
  Receive Date: 20120807
  Receipt Date: 20120726
  Transmission Date: 20120928
  Serious: Yes (Other)
  Sender: FDA-Public Use
  Company Number: DE-US-EMD SERONO, INC.-7150653

PATIENT
  Age: 43 Year
  Sex: Female

DRUGS (3)
  1. REBIF [Suspect]
     Indication: MULTIPLE SCLEROSIS
     Route: 058
     Dates: end: 20100101
  2. REBIF [Suspect]
     Route: 058
     Dates: start: 20100101, end: 20110101
  3. REBIF [Suspect]
     Route: 058
     Dates: start: 20110101

REACTIONS (4)
  - PYREXIA [None]
  - PAIN IN EXTREMITY [None]
  - DEMENTIA [None]
  - ARTHRALGIA [None]
